FAERS Safety Report 8013842-0 (Version None)
Quarter: 2011Q4

REPORT INFORMATION
  Report Type: 
  Country: None (occurrence: None)
  Receive Date: 20111229
  Receipt Date: 20111219
  Transmission Date: 20120403
  Serious: Yes (Other)
  Sender: FDA-Public Use
  Company Number: PHHY2011FR112440

PATIENT
  Age: 25 Year
  Sex: Male

DRUGS (7)
  1. TERBUTALINE [Suspect]
  2. ALPRAZOLAM [Suspect]
  3. TRIAMCINOLONE [Suspect]
  4. CETIRIZINE [Suspect]
  5. FORMOTEROL FUMARATE [Suspect]
  6. BUDESONIDE [Suspect]
  7. MONTELUKAST SODIUM [Suspect]

REACTIONS (2)
  - INSOMNIA [None]
  - AGGRESSION [None]
